FAERS Safety Report 19303389 (Version 1)
Quarter: 2021Q2

REPORT INFORMATION
  Report Type: Spontaneous
  Country: US (occurrence: US)
  Receive Date: 20210525
  Receipt Date: 20210525
  Transmission Date: 20210717
  Serious: No
  Sender: FDA-Public Use
  Company Number: US-MICRO LABS LIMITED-ML2021-01095

PATIENT
  Sex: Female
  Weight: 57 kg

DRUGS (3)
  1. DORZOLAMIDE HYDROCHLORIDE AND TIMOLO MALEATE OPHTHALMIC SOLUTION USP, [Suspect]
     Active Substance: DORZOLAMIDE\TIMOLOL
     Indication: GLAUCOMA
     Dosage: STRENGTH: 22.3 MG/6.8MG PER ML; ONE DROP IN EACH EYE TWICE A DAY, ONCE IN THE MORNING AND ONCE AT NI
     Route: 047
  2. LATANOPROST. [Concomitant]
     Active Substance: LATANOPROST
     Indication: GLAUCOMA
  3. DORZOLAMIDE HYDROCHLORIDE AND TIMOLO MALEATE OPHTHALMIC SOLUTION USP, [Suspect]
     Active Substance: DORZOLAMIDE\TIMOLOL
     Dosage: STRENGTH: 22.3 MG/6.8MG PER ML; ONE DROP IN EACH EYE TWICE A DAY, ONCE IN THE MORNING AND ONCE AT NI
     Route: 047

REACTIONS (5)
  - Eye pain [Unknown]
  - Eyelid margin crusting [Not Recovered/Not Resolved]
  - Product container issue [Unknown]
  - Ocular discomfort [Not Recovered/Not Resolved]
  - Product odour abnormal [Unknown]
